FAERS Safety Report 4475224-8 (Version None)
Quarter: 2004Q4

REPORT INFORMATION
  Report Type: 
  Country: None (occurrence: None)
  Receive Date: 20041013
  Receipt Date: 20041013
  Transmission Date: 20050328
  Serious: Yes (Hospitalization)
  Sender: FDA-Public Use
  Company Number: None

PATIENT
  Age: 67 Year
  Sex: Female

DRUGS (1)
  1. IOHEXOL [Suspect]
     Indication: COMPUTERISED TOMOGRAM
     Dates: start: 20040202, end: 20040202

REACTIONS (4)
  - COUGH [None]
  - DIZZINESS [None]
  - DYSPNOEA [None]
  - URTICARIA [None]
